FAERS Safety Report 12511615 (Version 1)
Quarter: 2016Q2

REPORT INFORMATION
  Report Type: Spontaneous
  Country: US (occurrence: US)
  Receive Date: 20160630
  Receipt Date: 20160630
  Transmission Date: 20160815
  Serious: No
  Sender: FDA-Public Use
  Company Number: US-009507513-1606USA002832

PATIENT
  Sex: Female

DRUGS (1)
  1. NEXPLANON [Suspect]
     Active Substance: ETONOGESTREL
     Dosage: UNK
     Dates: start: 2015, end: 20160603

REACTIONS (3)
  - Implant site pain [Unknown]
  - Menstruation irregular [Unknown]
  - Device deployment issue [Recovered/Resolved]

NARRATIVE: CASE EVENT DATE: 2015
